FAERS Safety Report 18946045 (Version 1)
Quarter: 2021Q1

REPORT INFORMATION
  Report Type: Spontaneous
  Country: US (occurrence: US)
  Receive Date: 20210226
  Receipt Date: 20210226
  Transmission Date: 20210420
  Serious: No
  Sender: FDA-Public Use
  Company Number: US-BAUSCH-BL-2021-005552

PATIENT
  Sex: Female

DRUGS (1)
  1. LOTEMAX [Suspect]
     Active Substance: LOTEPREDNOL ETABONATE
     Indication: DRY EYE
     Route: 065

REACTIONS (6)
  - Ocular hyperaemia [Unknown]
  - Eye pain [Unknown]
  - Dry eye [Unknown]
  - Therapy interrupted [Unknown]
  - Product packaging quantity issue [Unknown]
  - Disease recurrence [Unknown]
